FAERS Safety Report 16654954 (Version 2)
Quarter: 2019Q3

REPORT INFORMATION
  Report Type: Spontaneous
  Country: AU (occurrence: AU)
  Receive Date: 20190801
  Receipt Date: 20190924
  Transmission Date: 20191004
  Serious: Yes (Hospitalization)
  Sender: FDA-Public Use
  Company Number: AU-CELLTRION INC.-2019AU023361

PATIENT

DRUGS (5)
  1. INFLIXIMAB PFIZER (UNKNOWN) [Suspect]
     Active Substance: INFLIXIMAB
     Dosage: 5 MG/KG, Q 4 WKLY (EVERY 4 WEEKS)
     Dates: start: 201902
  2. INFLIXIMAB PFIZER (UNKNOWN) [Suspect]
     Active Substance: INFLIXIMAB
     Indication: COLITIS ULCERATIVE
     Dosage: 5 MG/KG, EVERY 4 WEEKS
  3. INFLIXIMAB PFIZER (UNKNOWN) [Suspect]
     Active Substance: INFLIXIMAB
     Dosage: 5MG/KG, UNK
  4. AZATHIOPRINE. [Concomitant]
     Active Substance: AZATHIOPRINE
     Indication: COLITIS ULCERATIVE
     Dosage: UNK
  5. ALLOPURINOL. [Concomitant]
     Active Substance: ALLOPURINOL
     Indication: COLITIS ULCERATIVE
     Dosage: UNK

REACTIONS (2)
  - Off label use [Unknown]
  - Drug ineffective [Unknown]
